FAERS Safety Report 14304676 (Version 1)
Quarter: 2017Q4

REPORT INFORMATION
  Report Type: Report from Study
  Country: JP (occurrence: JP)
  Receive Date: 20171219
  Receipt Date: 20171219
  Transmission Date: 20180321
  Serious: Yes (Other)
  Sender: FDA-Public Use
  Company Number: JP-OTSUKA-000240

PATIENT
  Age: 41 Year
  Sex: Male
  Weight: 76 kg

DRUGS (8)
  1. FLUNITRAZEPAM [Concomitant]
     Active Substance: FLUNITRAZEPAM
     Indication: PRODUCT USED FOR UNKNOWN INDICATION
     Dosage: 2 MG, QD
     Route: 048
     Dates: start: 20071102
  2. ARIPIPRAZOLE. [Suspect]
     Active Substance: ARIPIPRAZOLE
     Indication: SCHIZOPHRENIA
     Dosage: 9 MG, BID
     Route: 048
     Dates: start: 20071107, end: 20071111
  3. ARIPIPRAZOLE. [Suspect]
     Active Substance: ARIPIPRAZOLE
     Dosage: 12 MG, BID
     Route: 048
     Dates: start: 20071204, end: 20071207
  4. ZYPREXA [Concomitant]
     Active Substance: OLANZAPINE
     Indication: SCHIZOPHRENIA
     Dosage: 20 MG, QD
     Route: 048
     Dates: start: 20071102, end: 20071127
  5. ZYPREXA [Concomitant]
     Active Substance: OLANZAPINE
     Dosage: 20 MG, QD
     Route: 048
     Dates: start: 20071204, end: 20071207
  6. ARIPIPRAZOLE. [Suspect]
     Active Substance: ARIPIPRAZOLE
     Dosage: 15 MG, BID
     Route: 048
     Dates: start: 20071117, end: 20071203
  7. ZYPREXA [Concomitant]
     Active Substance: OLANZAPINE
     Dosage: 15 MG, QD
     Route: 048
     Dates: start: 20071128, end: 20071203
  8. ARIPIPRAZOLE. [Suspect]
     Active Substance: ARIPIPRAZOLE
     Dosage: 12 MG, BID
     Route: 048
     Dates: start: 20071112, end: 20071116

REACTIONS (6)
  - Feeling abnormal [Unknown]
  - Aggression [Recovering/Resolving]
  - Morose [Recovering/Resolving]
  - Hallucination, auditory [Recovered/Resolved]
  - Insomnia [Recovering/Resolving]
  - Delusion [Recovered/Resolved]

NARRATIVE: CASE EVENT DATE: 20071112
